FAERS Safety Report 9224241 (Version 1)
Quarter: 2013Q2

REPORT INFORMATION
  Report Type: Spontaneous
  Country: US (occurrence: None)
  Receive Date: 20130409
  Receipt Date: 20130409
  Transmission Date: 20140414
  Serious: Yes (Other)
  Sender: FDA-Public Use
  Company Number: None

PATIENT
  Age: 65 Year
  Sex: Female
  Weight: 105.24 kg

DRUGS (17)
  1. MEROPENEM [Suspect]
     Indication: PYELONEPHRITIS
     Route: 042
     Dates: start: 20130325, end: 20130326
  2. AMLODIPINE [Concomitant]
  3. BACITRACIN [Concomitant]
  4. DOCUSATE SODIUM [Concomitant]
  5. FUROSEMIDE [Concomitant]
  6. GLUCOGAN [Concomitant]
  7. MUSLIN CLARGINE INJECTION [Concomitant]
  8. MAGNESIUM OXIDE [Concomitant]
  9. METOPROLOL TARTRATE [Concomitant]
  10. OXYCODONE [Concomitant]
  11. PREDNISONE [Concomitant]
  12. RANITIDINE [Concomitant]
  13. SENNOSIDES [Concomitant]
  14. ATORVASTATIN [Concomitant]
  15. MSYLIN LISPRO [Concomitant]
  16. MYCOPHENOLATE METIL [Concomitant]
  17. PROGRAF [Concomitant]

REACTIONS (2)
  - Paraesthesia [None]
  - Pruritus [None]
